FAERS Safety Report 21370882 (Version 2)
Quarter: 2022Q4

REPORT INFORMATION
  Report Type: Spontaneous
  Country: US (occurrence: US)
  Receive Date: 20220923
  Receipt Date: 20221130
  Transmission Date: 20230113
  Serious: No
  Sender: FDA-Public Use
  Company Number: US-BEH-2022149744

PATIENT
  Age: 40 Year
  Sex: Female

DRUGS (6)
  1. HIZENTRA [Suspect]
     Active Substance: HUMAN IMMUNOGLOBULIN G
     Indication: Chronic inflammatory demyelinating polyradiculoneuropathy
     Dosage: 10 GRAM, QW
     Route: 058
     Dates: start: 20220405
  2. HIZENTRA [Suspect]
     Active Substance: HUMAN IMMUNOGLOBULIN G
     Indication: Mononeuropathy multiplex
     Dosage: UNK
     Route: 058
     Dates: start: 202204
  3. HIZENTRA [Suspect]
     Active Substance: HUMAN IMMUNOGLOBULIN G
     Indication: Vasculitis
  4. DIPHENHYDRAMINE [Concomitant]
     Active Substance: DIPHENHYDRAMINE
  5. EPINEPHRINE [Concomitant]
     Active Substance: EPINEPHRINE
  6. METHOTREXATE [Concomitant]
     Active Substance: METHOTREXATE

REACTIONS (7)
  - Malaise [Unknown]
  - No adverse event [Unknown]
  - Product use issue [Unknown]
  - No adverse event [Unknown]
  - Product dose omission issue [Unknown]
  - No adverse event [Not Recovered/Not Resolved]
  - Off label use [Not Recovered/Not Resolved]

NARRATIVE: CASE EVENT DATE: 20220401
